FAERS Safety Report 18710131 (Version 2)
Quarter: 2021Q1

REPORT INFORMATION
  Report Type: Spontaneous
  Country: HR (occurrence: HR)
  Receive Date: 20210106
  Receipt Date: 20210126
  Transmission Date: 20210419
  Serious: Yes (Death, Hospitalization, Other)
  Sender: FDA-Public Use
  Company Number: HR-JNJFOC-20210106880

PATIENT
  Age: 78 Year
  Sex: Female
  Weight: 89 kg

DRUGS (6)
  1. XARELTO [Suspect]
     Active Substance: RIVAROXABAN
     Indication: ATRIAL FIBRILLATION
     Dosage: UNK
     Route: 048
  2. SIOFOR [Concomitant]
     Active Substance: METFORMIN HYDROCHLORIDE
     Dosage: 850 MG
  3. ACIPAN [Concomitant]
     Active Substance: PANTOPRAZOLE SODIUM
     Dosage: 40 MG
  4. CARVELOL [Concomitant]
     Active Substance: CARVEDILOL
     Dosage: 6.25 MG
  5. XARELTO [Suspect]
     Active Substance: RIVAROXABAN
     Dosage: 10 MG, QD
     Route: 048
  6. ALOPURINOL [Concomitant]
     Active Substance: ALLOPURINOL

REACTIONS (9)
  - Respiratory disorder [Unknown]
  - Haemodynamic instability [Unknown]
  - Electrocardiogram QT prolonged [Unknown]
  - Respiratory failure [Unknown]
  - Sinus bradycardia [Unknown]
  - Duodenal ulcer haemorrhage [Unknown]
  - Cough [Unknown]
  - Pyrexia [Unknown]
  - Dyspnoea [Unknown]
